FAERS Safety Report 5684147-8 (Version None)
Quarter: 2008Q1

REPORT INFORMATION
  Report Type: 
  Country: None (occurrence: None)
  Receive Date: 20080328
  Receipt Date: 20070503
  Transmission Date: 20080703
  Serious: No
  Sender: FDA-Public Use
  Company Number: US-AMGEN-US202251

PATIENT
  Sex: Female
  Weight: 70.8 kg

DRUGS (7)
  1. NEULASTA [Suspect]
     Indication: CHEMOTHERAPY
     Route: 058
     Dates: start: 20061129
  2. ADRIAMYCIN PFS [Concomitant]
     Route: 065
     Dates: start: 20061128, end: 20061128
  3. CYTOXAN [Concomitant]
     Route: 065
     Dates: start: 20061128, end: 20061128
  4. ZOFRAN [Concomitant]
     Route: 065
     Dates: start: 20061128, end: 20061128
  5. ATIVAN [Concomitant]
     Route: 065
     Dates: start: 20061128
  6. DECADRON [Concomitant]
     Route: 065
     Dates: start: 20061128, end: 20061128
  7. LORAZEPAM [Concomitant]
     Dates: start: 20061128

REACTIONS (3)
  - CHEST PAIN [None]
  - PYREXIA [None]
  - WHITE BLOOD CELL COUNT INCREASED [None]
